FAERS Safety Report 10040665 (Version 2)
Quarter: 2014Q2

REPORT INFORMATION
  Report Type: Spontaneous
  Country: US (occurrence: US)
  Receive Date: 20140327
  Receipt Date: 20140411
  Transmission Date: 20141212
  Serious: Yes (Other)
  Sender: FDA-Public Use
  Company Number: US-SA-2014SA035382

PATIENT
  Age: 73 Year
  Sex: Female

DRUGS (4)
  1. LANTUS [Suspect]
     Indication: TYPE 2 DIABETES MELLITUS
     Dosage: DOSE:75 UNIT(S)
     Route: 065
     Dates: start: 2004
  2. LANTUS [Suspect]
     Indication: TYPE 2 DIABETES MELLITUS
     Dosage: QPM IN EVENING DOSE:85 UNIT(S)
     Route: 065
  3. NOVOLOG [Concomitant]
     Dosage: DOSE:10 UNIT(S)
  4. FLEXPEN [Concomitant]
     Dosage: DOSE:10 UNIT(S)

REACTIONS (3)
  - Neoplasm malignant [Not Recovered/Not Resolved]
  - Myocardial infarction [Not Recovered/Not Resolved]
  - Arterial restenosis [Not Recovered/Not Resolved]
